FAERS Safety Report 9498366 (Version 3)
Quarter: 2013Q4

REPORT INFORMATION
  Report Type: Spontaneous
  Country: CR (occurrence: CR)
  Receive Date: 20130904
  Receipt Date: 20131016
  Transmission Date: 20140711
  Serious: Yes (Other)
  Sender: FDA-Public Use
  Company Number: CR-ELI_LILLY_AND_COMPANY-CR201308008092

PATIENT
  Age: 77 Year
  Sex: Female

DRUGS (7)
  1. DULOXETINE HYDROCHLORIDE [Suspect]
     Indication: DEPRESSION
     Dosage: 30 MG, QD
     Route: 065
  2. DULOXETINE HYDROCHLORIDE [Interacting]
     Dosage: 60 MG, UNKNOWN
  3. TRAMACET [Interacting]
     Indication: PAIN
     Dosage: UNK, UNKNOWN
     Route: 065
  4. CODIOVAN [Concomitant]
     Indication: HYPERTENSION
  5. IRON [Concomitant]
  6. CELEBRA [Concomitant]
     Dosage: UNK, BID
  7. NEXIUM [Concomitant]
     Dosage: 40 MG, UNK

REACTIONS (9)
  - Dementia [Recovered/Resolved]
  - Memory impairment [Recovered/Resolved]
  - Pica [Recovered/Resolved]
  - Vomiting [Recovered/Resolved]
  - Confusional state [Recovered/Resolved]
  - Drug interaction [Unknown]
  - Hallucination [Recovered/Resolved]
  - Tremor [Recovered/Resolved]
  - Movement disorder [Recovering/Resolving]
